FAERS Safety Report 24365369 (Version 2)
Quarter: 2025Q1

REPORT INFORMATION
  Report Type: Spontaneous
  Country: CA (occurrence: CA)
  Receive Date: 20240926
  Receipt Date: 20250318
  Transmission Date: 20250408
  Serious: Yes (Other)
  Sender: Kenvue
  Company Number: CA-JNJFOC-20240965765

PATIENT

DRUGS (1)
  1. CETIRIZINE HYDROCHLORIDE [Suspect]
     Active Substance: CETIRIZINE HYDROCHLORIDE
     Indication: Seasonal allergy
     Dosage: 1 TABLET, ONCE DAILY
     Route: 048

REACTIONS (7)
  - Asthenia [Recovered/Resolved]
  - Chest discomfort [Recovering/Resolving]
  - Chest pain [Recovered/Resolved]
  - Palpitations [Recovered/Resolved]
  - Heart rate irregular [Recovered/Resolved]
  - Insomnia [Recovered/Resolved]
  - Somnolence [Recovering/Resolving]

NARRATIVE: CASE EVENT DATE: 20220701
